FAERS Safety Report 23547638 (Version 1)
Quarter: 2024Q1

REPORT INFORMATION
  Report Type: Spontaneous
  Country: GB (occurrence: GB)
  Receive Date: 20240221
  Receipt Date: 20240221
  Transmission Date: 20240410
  Serious: Yes (Other)
  Sender: FDA-Public Use
  Company Number: GB-MHRA-EMIS-73411-74938f03-544c-4b12-977d-2ae37f04b435

PATIENT
  Age: 32 Year
  Sex: Male
  Weight: 76 kg

DRUGS (3)
  1. ARIPIPRAZOLE [Suspect]
     Active Substance: ARIPIPRAZOLE
     Indication: Hallucination
     Dosage: 1 DOSAGE FORM, ONCE A DAY
     Route: 065
  2. CHOLECALCIFEROL [Concomitant]
     Active Substance: CHOLECALCIFEROL
     Indication: Product used for unknown indication
     Dosage: 2 DOSAGE FORM, EVERY WEEK, FOR 10 WEEKS, AND THEN CONTINUE WITH AN OVER-THE-COUNTER VITAMIN D SUPPLE
     Route: 065
     Dates: start: 20240201
  3. BUDESONIDE\FORMOTEROL FUMARATE [Concomitant]
     Active Substance: BUDESONIDE\FORMOTEROL FUMARATE
     Indication: Product used for unknown indication
     Dosage: 2 DOSAGE FORM, TWO TIMES A DAY, PUFFS
     Route: 055
     Dates: start: 20231201

REACTIONS (1)
  - Gambling [Not Recovered/Not Resolved]
